FAERS Safety Report 10363068 (Version 7)
Quarter: 2019Q1

REPORT INFORMATION
  Report Type: Report from Study
  Country: US (occurrence: US)
  Receive Date: 20140805
  Receipt Date: 20190225
  Transmission Date: 20190417
  Serious: Yes (Other)
  Sender: FDA-Public Use
  Company Number: US-SA-2014SA105101

PATIENT
  Age: 27 Year
  Sex: Male

DRUGS (4)
  1. AGALSIDASE BETA [Suspect]
     Active Substance: AGALSIDASE BETA
     Indication: FABRY^S DISEASE
     Dosage: 95 UNK, FREQUENCY: Q2
     Route: 041
     Dates: start: 20120308
  2. AGALSIDASE BETA [Suspect]
     Active Substance: AGALSIDASE BETA
     Dosage: 95(UNITS: NOT SPECIFIED), Q2
     Route: 041
     Dates: start: 20161013
  3. LISINOPRIL. [Concomitant]
     Active Substance: LISINOPRIL
     Indication: HYPERTENSION
     Dosage: UNK
  4. TOPROL XL [Concomitant]
     Active Substance: METOPROLOL SUCCINATE
     Indication: HYPERTENSION
     Dosage: UNK

REACTIONS (13)
  - Mouth swelling [Recovered/Resolved]
  - Arthralgia [Unknown]
  - Paternal exposure during pregnancy [Unknown]
  - Tinnitus [Unknown]
  - Swollen tongue [Recovered/Resolved]
  - Hypotension [Unknown]
  - Infusion related reaction [Recovered/Resolved]
  - Chest pain [Recovered/Resolved]
  - Pain in extremity [Unknown]
  - Left ventricle outflow tract obstruction [Unknown]
  - Left ventricular hypertrophy [Unknown]
  - Corneal deposits [Unknown]
  - Protein urine present [Unknown]
